FAERS Safety Report 10549335 (Version 6)
Quarter: 2017Q4

REPORT INFORMATION
  Report Type: Spontaneous
  Country: JP (occurrence: JP)
  Receive Date: 20141028
  Receipt Date: 20171009
  Transmission Date: 20180320
  Serious: Yes (Life-Threatening, Hospitalization, Other)
  Sender: FDA-Public Use
  Company Number: JP-BRISTOL-MYERS SQUIBB COMPANY-20469037

PATIENT
  Age: 81 Year
  Sex: Male
  Weight: 52 kg

DRUGS (21)
  1. ARTIST [Concomitant]
     Active Substance: CARVEDILOL
     Indication: CORONARY ARTERIAL STENT INSERTION
     Dosage: 10 MG, BID
     Route: 048
  2. OLMETEC [Concomitant]
     Active Substance: OLMESARTAN MEDOXOMIL
     Indication: HYPERTENSION
     Dosage: 20 MG, BID
     Route: 048
  3. OLMETEC [Concomitant]
     Active Substance: OLMESARTAN MEDOXOMIL
     Dosage: 20 MG, BID
     Route: 048
  4. CETUXIMAB. [Suspect]
     Active Substance: CETUXIMAB
     Indication: OROPHARYNGEAL CANCER
     Dosage: 560 MG, QD
     Route: 041
     Dates: start: 20130612, end: 20130612
  5. SIGMART [Concomitant]
     Active Substance: NICORANDIL
     Indication: CORONARY ARTERIAL STENT INSERTION
     Dosage: 5 MG, BID
     Route: 048
  6. NORVASC [Concomitant]
     Active Substance: AMLODIPINE BESYLATE
     Indication: HYPERTENSION
     Dosage: 5 MG, BID
     Route: 048
  7. CARDENALIN [Concomitant]
     Active Substance: DOXAZOSIN MESYLATE
     Indication: HYPERTENSION
     Dosage: 4 MG, BID
     Route: 048
  8. SOLU-MEDROL [Suspect]
     Active Substance: METHYLPREDNISOLONE SODIUM SUCCINATE
     Indication: WHEEZING
     Dosage: 125 MG, UNK
     Route: 041
     Dates: start: 20130612, end: 20130612
  9. ARTIST [Concomitant]
     Active Substance: CARVEDILOL
     Indication: CORONARY ARTERIAL STENT INSERTION
     Dosage: 10 MG, BID
     Route: 048
  10. ADRENALINE                         /00003901/ [Suspect]
     Active Substance: EPINEPHRINE
     Indication: BLOOD PRESSURE DECREASED
     Dosage: 1 MG, UNK
     Route: 041
     Dates: start: 20130612, end: 20130612
  11. ANPLAG [Concomitant]
     Active Substance: SARPOGRELATE
     Indication: CORONARY ARTERIAL STENT INSERTION
     Dosage: 100 MG, TID
     Route: 048
     Dates: start: 20130611, end: 20130612
  12. ITOROL [Concomitant]
     Active Substance: ISOSORBIDE MONONITRATE
     Indication: CORONARY ARTERIAL STENT INSERTION
     Dosage: 20 MG, BID
     Route: 048
  13. DECADRON [Suspect]
     Active Substance: DEXAMETHASONE
     Indication: PREMEDICATION
     Dosage: 6.6 MG, DAILY
     Route: 042
     Dates: start: 20130612, end: 20130612
  14. PLETAAL [Concomitant]
     Active Substance: CILOSTAZOL
     Indication: CORONARY ARTERIAL STENT INSERTION
     Dosage: 100 MG, BID
     Route: 048
     Dates: start: 20130611, end: 20130612
  15. VENA                               /00000402/ [Concomitant]
     Indication: OROPHARYNGEAL CANCER
     Dosage: 50 MG, QD
     Route: 048
     Dates: start: 20130612, end: 20130612
  16. PLETAAL [Concomitant]
     Active Substance: CILOSTAZOL
     Indication: CORONARY ARTERIAL STENT INSERTION
     Dosage: 100 MG, BID
     Route: 048
     Dates: start: 20130611, end: 20130612
  17. ANPLAG [Concomitant]
     Active Substance: SARPOGRELATE
     Indication: CORONARY ARTERIAL STENT INSERTION
     Dosage: 100 MG, TID
     Route: 048
     Dates: start: 20130611, end: 20130612
  18. SIGMART [Concomitant]
     Active Substance: NICORANDIL
     Indication: CORONARY ARTERIAL STENT INSERTION
     Dosage: 5 MG, BID
     Route: 048
  19. ITOROL [Concomitant]
     Active Substance: ISOSORBIDE MONONITRATE
     Indication: CORONARY ARTERIAL STENT INSERTION
     Dosage: 20 MG, BID
     Route: 048
  20. NORVASC [Concomitant]
     Active Substance: AMLODIPINE BESYLATE
     Dosage: 5 MG, BID
     Route: 048
  21. CARDENALIN [Concomitant]
     Active Substance: DOXAZOSIN MESYLATE
     Dosage: 4 MG, BID
     Route: 048

REACTIONS (2)
  - Anaphylactic shock [Recovered/Resolved]
  - Gastrointestinal haemorrhage [Recovered/Resolved]

NARRATIVE: CASE EVENT DATE: 20130612
